FAERS Safety Report 19895672 (Version 1)
Quarter: 2021Q3

REPORT INFORMATION
  Report Type: Spontaneous
  Country: US (occurrence: US)
  Receive Date: 20210928
  Receipt Date: 20210928
  Transmission Date: 20211014
  Serious: No
  Sender: FDA-Public Use
  Company Number: None

PATIENT

DRUGS (1)
  1. VASOPRESSIN IV [Suspect]
     Active Substance: VASOPRESSIN

REACTIONS (2)
  - Wrong technique in device usage process [None]
  - Product size issue [None]
